FAERS Safety Report 4266813-4 (Version None)
Quarter: 2004Q1

REPORT INFORMATION
  Report Type: 
  Country: None (occurrence: None)
  Receive Date: 20040108
  Receipt Date: 20030506
  Transmission Date: 20041129
  Serious: No
  Sender: FDA-Public Use
  Company Number: US-GLAXOSMITHKLINE-A0407497A

PATIENT

DRUGS (3)
  1. EPIVIR [Suspect]
     Indication: HIV INFECTION
     Dosage: 300MG PER DAY
     Route: 048
  2. SUSTIVA [Suspect]
     Indication: HIV INFECTION
     Dosage: 600MG PER DAY
     Route: 048
  3. ZERIT [Concomitant]
     Indication: HIV INFECTION

REACTIONS (4)
  - ABDOMINAL PAIN LOWER [None]
  - FATIGUE [None]
  - PALPITATIONS [None]
  - VISION BLURRED [None]
